FAERS Safety Report 10528466 (Version 1)
Quarter: 2014Q4

REPORT INFORMATION
  Report Type: Spontaneous
  Country: US (occurrence: None)
  Receive Date: 20141017
  Receipt Date: 20141017
  Transmission Date: 20150528
  Serious: Yes (Hospitalization)
  Sender: FDA-Public Use
  Company Number: None

PATIENT
  Age: 70 Year
  Sex: Female
  Weight: 79.38 kg

DRUGS (1)
  1. VALSARTAN AND HYDROCHLOROTHIAZIDE [Suspect]
     Active Substance: HYDROCHLOROTHIAZIDE\VALSARTAN
     Indication: HYPERTENSION

REACTIONS (7)
  - Night sweats [None]
  - Hypoaesthesia [None]
  - Dizziness [None]
  - Hemiparesis [None]
  - Fall [None]
  - Peripheral coldness [None]
  - Sinusitis [None]

NARRATIVE: CASE EVENT DATE: 20140916
